FAERS Safety Report 10050155 (Version 1)
Quarter: 2014Q1

REPORT INFORMATION
  Report Type: Spontaneous
  Country: US (occurrence: None)
  Receive Date: 20140331
  Receipt Date: 20140331
  Transmission Date: 20141002
  Serious: Yes (Disabling)
  Sender: FDA-Public Use
  Company Number: None

PATIENT
  Age: 44 Year
  Sex: Female
  Weight: 49.9 kg

DRUGS (1)
  1. ANASTROZOLE, 1 MG [Suspect]
     Route: 048

REACTIONS (9)
  - Arthralgia [None]
  - Joint stiffness [None]
  - Gait disturbance [None]
  - Connective tissue disorder [None]
  - Muscle disorder [None]
  - Gait disturbance [None]
  - Muscular weakness [None]
  - Myalgia [None]
  - Walking aid user [None]
